FAERS Safety Report 6138860-9 (Version None)
Quarter: 2009Q1

REPORT INFORMATION
  Report Type: 
  Country: None (occurrence: None)
  Receive Date: 20090331
  Receipt Date: 20090325
  Transmission Date: 20090719
  Serious: No
  Sender: FDA-Public Use
  Company Number: US-B.I. PHARMACEUTICALS,INC./RIDGEFIELD-2009-BP-03754BP

PATIENT
  Age: 69 Year
  Sex: Male

DRUGS (2)
  1. FLOMAX [Suspect]
     Indication: BENIGN PROSTATIC HYPERPLASIA
     Dosage: .4MG
     Route: 048
     Dates: start: 20081001, end: 20081101
  2. FLOMAX [Suspect]
     Dosage: .8MG
     Route: 048
     Dates: start: 20081101

REACTIONS (2)
  - DRUG INEFFECTIVE [None]
  - POSTNASAL DRIP [None]
